FAERS Safety Report 6971879-4 (Version None)
Quarter: 2010Q3

REPORT INFORMATION
  Report Type: 
  Country: None (occurrence: None)
  Receive Date: 20100908
  Receipt Date: 20100908
  Transmission Date: 20110219
  Serious: Yes (Hospitalization)
  Sender: FDA-Public Use
  Company Number: None

PATIENT
  Age: 77 Year
  Sex: Male
  Weight: 88.6 kg

DRUGS (8)
  1. LENALIDOMIDE [Suspect]
     Dosage: 20 MG PO DAILY
     Route: 048
     Dates: start: 20100407
  2. LENALIDOMIDE [Suspect]
     Dosage: 20 MG PO DAILY
     Route: 048
     Dates: start: 20100728
  3. TOPROL-XL [Concomitant]
  4. LASIX [Concomitant]
  5. PRANDIN [Concomitant]
  6. ZOCOR [Concomitant]
  7. XCL [Concomitant]
  8. COUMADIN [Concomitant]

REACTIONS (8)
  - BLOOD CULTURE POSITIVE [None]
  - DYSURIA [None]
  - PYREXIA [None]
  - SERRATIA INFECTION [None]
  - STAPHYLOCOCCAL INFECTION [None]
  - TACHYPNOEA [None]
  - TREMOR [None]
  - URINARY TRACT INFECTION [None]
